FAERS Safety Report 4842406-2 (Version None)
Quarter: 2005Q4

REPORT INFORMATION
  Report Type: 
  Country: None (occurrence: None)
  Receive Date: 20051201
  Receipt Date: 20051125
  Transmission Date: 20060501
  Serious: Yes (Life-Threatening)
  Sender: FDA-Public Use
  Company Number: MX-BRISTOL-MYERS SQUIBB COMPANY-13196993

PATIENT
  Age: 60 Year
  Sex: Female

DRUGS (1)
  1. CORGARD [Suspect]
     Indication: HYPERTENSION
     Route: 048
     Dates: end: 20050101

REACTIONS (1)
  - PLATELET COUNT DECREASED [None]
